FAERS Safety Report 21738676 (Version 1)
Quarter: 2022Q4

REPORT INFORMATION
  Report Type: Spontaneous
  Country: US (occurrence: US)
  Receive Date: 20221216
  Receipt Date: 20221216
  Transmission Date: 20230113
  Serious: No
  Sender: FDA-Public Use
  Company Number: US-ENDO PHARMACEUTICALS INC-2022-000183

PATIENT
  Sex: Male
  Weight: 108.84 kg

DRUGS (13)
  1. XIAFLEX [Suspect]
     Active Substance: COLLAGENASE CLOSTRIDIUM HISTOLYTICUM
     Indication: Peyronie^s disease
     Dosage: UNK, UNKNOWN (CYCLE ONE, INJECTION ONE)
     Route: 065
     Dates: start: 201708
  2. XIAFLEX [Suspect]
     Active Substance: COLLAGENASE CLOSTRIDIUM HISTOLYTICUM
     Dosage: UNK, UNKNOWN (CYCLE ONE, INJECTION TWO)
     Route: 065
     Dates: start: 201708
  3. XIAFLEX [Suspect]
     Active Substance: COLLAGENASE CLOSTRIDIUM HISTOLYTICUM
     Dosage: UNK, UNKNOWN (CYCLE TWO, INJECTION ONE)
     Route: 065
     Dates: start: 201708
  4. XIAFLEX [Suspect]
     Active Substance: COLLAGENASE CLOSTRIDIUM HISTOLYTICUM
     Dosage: UNK, UNKNOWN (CYCLE TWO, INJECTION TWO)
     Route: 065
     Dates: start: 201708
  5. XIAFLEX [Suspect]
     Active Substance: COLLAGENASE CLOSTRIDIUM HISTOLYTICUM
     Dosage: UNK, UNKNOWN (CYCLE THREE, INJECTION ONE)
     Route: 065
     Dates: start: 201708
  6. XIAFLEX [Suspect]
     Active Substance: COLLAGENASE CLOSTRIDIUM HISTOLYTICUM
     Dosage: UNK, UNKNOWN (CYCLE THREE, INJECTION TWO)
     Route: 065
     Dates: start: 201708
  7. XIAFLEX [Suspect]
     Active Substance: COLLAGENASE CLOSTRIDIUM HISTOLYTICUM
     Dosage: UNK, UNKNOWN (CYCLE FOUR, INJECTION ONE)
     Route: 065
     Dates: start: 201708
  8. XIAFLEX [Suspect]
     Active Substance: COLLAGENASE CLOSTRIDIUM HISTOLYTICUM
     Dosage: UNK, UNKNOWN (CYCLE FOUR, INJECTION TWO)
     Route: 065
     Dates: start: 201708
  9. MELOXICAM [Concomitant]
     Active Substance: MELOXICAM
     Indication: Product used for unknown indication
     Dosage: 7.5 MG, PRN
     Route: 065
  10. PROTONIX                           /00661201/ [Concomitant]
     Indication: Product used for unknown indication
     Dosage: UNK UNKNOWN, UNKNOWN
     Route: 065
  11. ASMANEX [Concomitant]
     Active Substance: MOMETASONE FUROATE
     Indication: Product used for unknown indication
     Dosage: UNK UNKNOWN, UNKNOWN
     Route: 065
  12. SPIRIVA [Concomitant]
     Active Substance: TIOTROPIUM BROMIDE MONOHYDRATE
     Indication: Product used for unknown indication
     Dosage: UNK UNKNOWN, UNKNOWN
     Route: 065
  13. ALBUTEROL [Concomitant]
     Active Substance: ALBUTEROL
     Indication: Product used for unknown indication
     Dosage: UNK UNKNOWN, UNKNOWN
     Route: 065

REACTIONS (1)
  - Peyronie^s disease [Not Recovered/Not Resolved]
